FAERS Safety Report 6483412-4 (Version None)
Quarter: 2009Q4

REPORT INFORMATION
  Report Type: 
  Country: None (occurrence: None)
  Receive Date: 20091209
  Receipt Date: 20091130
  Transmission Date: 20100525
  Serious: Yes (Hospitalization, Other)
  Sender: FDA-Public Use
  Company Number: GB-PFIZER INC-2009303613

PATIENT
  Age: 52 Year
  Sex: Female

DRUGS (11)
  1. LINEZOLID [Suspect]
     Indication: WOUND INFECTION
     Dosage: UNK
     Route: 048
     Dates: start: 20091029, end: 20091117
  2. ACETYLSALICYLIC ACID [Concomitant]
  3. CITALOPRAM [Concomitant]
  4. DICLOFENAC [Concomitant]
  5. DILTIAZEM HYDROCHLORIDE [Concomitant]
  6. PARACETAMOL [Concomitant]
  7. QUININE SULPHATE [Concomitant]
  8. RABEPRAZOLE [Concomitant]
  9. SERETIDE [Concomitant]
  10. SIMVASTATIN [Concomitant]
  11. TRAMADOL HYDROCHLORIDE [Concomitant]

REACTIONS (2)
  - SWELLING [None]
  - TONGUE BLISTERING [None]
